FAERS Safety Report 5191622-1 (Version None)
Quarter: 2006Q4

REPORT INFORMATION
  Report Type: 
  Country: None (occurrence: None)
  Receive Date: 20061219
  Receipt Date: 20061211
  Transmission Date: 20070319
  Serious: Yes (Other)
  Sender: FDA-Public Use
  Company Number: 2006152439

PATIENT
  Age: 67 Year
  Sex: Male

DRUGS (3)
  1. LIPITOR [Suspect]
     Indication: HYPERCHOLESTEROLAEMIA
     Dosage: 10 MG, ORAL
     Route: 048
     Dates: start: 20060711, end: 20061104
  2. BLOPRESS (CANDESARTAN CILEXETIL) [Suspect]
     Dosage: 8 MG, ORAL
     Route: 048
     Dates: start: 20060711, end: 20061104
  3. URALYT (ARNICA EXTRACT, CONVALLARIA GLYCOSIDES, ECHINACEA ANGUSTIFOLIA [Concomitant]

REACTIONS (8)
  - ALANINE AMINOTRANSFERASE INCREASED [None]
  - ASPARTATE AMINOTRANSFERASE INCREASED [None]
  - BLOOD ALKALINE PHOSPHATASE INCREASED [None]
  - BLOOD BILIRUBIN INCREASED [None]
  - ECZEMA [None]
  - GAMMA-GLUTAMYLTRANSFERASE INCREASED [None]
  - LIVER DISORDER [None]
  - PRURITUS GENERALISED [None]
